FAERS Safety Report 11244499 (Version 5)
Quarter: 2016Q2

REPORT INFORMATION
  Report Type: Spontaneous
  Country: US (occurrence: US)
  Receive Date: 20150707
  Receipt Date: 20160413
  Transmission Date: 20160815
  Serious: Yes (Hospitalization, Other)
  Sender: FDA-Public Use
  Company Number: US-GLAXOSMITHKLINE-US2015094169

PATIENT
  Age: 84 Year
  Sex: Male

DRUGS (7)
  1. ADVAIR DISKUS [Suspect]
     Active Substance: FLUTICASONE PROPIONATE\SALMETEROL XINAFOATE
     Indication: CHRONIC OBSTRUCTIVE PULMONARY DISEASE
     Dosage: 100/50 MCG 1 PUFF(S), BID
  2. PLAVIX [Concomitant]
     Active Substance: CLOPIDOGREL BISULFATE
  3. ADVAIR DISKUS [Suspect]
     Active Substance: FLUTICASONE PROPIONATE\SALMETEROL XINAFOATE
     Dosage: 1 PUFF(S), QD
     Route: 055
  4. XARELTO [Concomitant]
     Active Substance: RIVAROXABAN
  5. ADVAIR DISKUS [Suspect]
     Active Substance: FLUTICASONE PROPIONATE\SALMETEROL XINAFOATE
     Dosage: 1 PUFF(S), BID
     Route: 055
  6. ATORVASTATIN [Concomitant]
     Active Substance: ATORVASTATIN
  7. PRESERVISION [Concomitant]
     Active Substance: MINERALS\VITAMINS

REACTIONS (12)
  - Coronary artery occlusion [Unknown]
  - Myocardial infarction [Recovered/Resolved]
  - Dysphonia [Unknown]
  - Treatment noncompliance [Unknown]
  - Coronary arterial stent insertion [Unknown]
  - Atrial fibrillation [Recovered/Resolved]
  - Productive cough [Not Recovered/Not Resolved]
  - Blood cholesterol increased [Unknown]
  - Spinal operation [Unknown]
  - Increased upper airway secretion [Unknown]
  - Throat irritation [Unknown]
  - Intentional underdose [Unknown]

NARRATIVE: CASE EVENT DATE: 201503
